FAERS Safety Report 8796877 (Version 1)
Quarter: 2012Q4

REPORT INFORMATION
  Report Type: Report from Study
  Country: JP (occurrence: JP)
  Receive Date: 20120919
  Receipt Date: 20120919
  Transmission Date: 20130627
  Serious: Yes (Hospitalization)
  Sender: FDA-Public Use
  Company Number: JP-VERTEX PHARMACEUTICAL INC.-AE-2012-009477

PATIENT
  Age: 70 Year
  Sex: Female

DRUGS (10)
  1. VX-950 [Suspect]
     Indication: HEPATITIS C
     Dosage: 1500 mg, qd
     Route: 048
     Dates: start: 20120223
  2. VX-950 [Suspect]
     Dosage: 1500 mg, qd
     Route: 048
  3. RIBAVIRIN [Suspect]
     Indication: HEPATITIS C
     Dosage: 600 mg, qd
     Route: 048
     Dates: start: 20120223, end: 20120314
  4. RIBAVIRIN [Suspect]
     Dosage: 400 mg, qd
     Route: 048
     Dates: start: 20120315
  5. RIBAVIRIN [Suspect]
     Dosage: 200 mg, qd
     Route: 048
     Dates: start: 20120412
  6. RIBAVIRIN [Suspect]
     Dosage: 400 mg, qd
     Route: 048
     Dates: start: 20120621
  7. RIBAVIRIN [Suspect]
     Dosage: 600 mg, qd
     Route: 048
     Dates: start: 20120628, end: 20120815
  8. PEGINTERFERON ALFA-2B [Suspect]
     Indication: HEPATITIS C
     Dosage: 1.5 UNK, UNK
     Route: 058
  9. PEGINTERFERON ALFA-2B [Suspect]
     Dosage: 1.5 UNK, UNK
     Route: 058
     Dates: end: 20120809
  10. PREDNISOLONE [Concomitant]
     Dosage: 5 mg, qd
     Route: 048
     Dates: start: 20120524, end: 20120530

REACTIONS (1)
  - Urinary tract infection [Recovered/Resolved]
